FAERS Safety Report 9695996 (Version 1)
Quarter: 2013Q4

REPORT INFORMATION
  Report Type: Report from Study
  Country: JP (occurrence: JP)
  Receive Date: 20131119
  Receipt Date: 20131119
  Transmission Date: 20140711
  Serious: Yes (Hospitalization)
  Sender: FDA-Public Use
  Company Number: JP-B.I. PHARMACEUTICALS,INC./RIDGEFIELD-2013-BI-38104GD

PATIENT
  Age: 71 Year
  Sex: Male
  Weight: 60.5 kg

DRUGS (4)
  1. PRADAXA [Suspect]
     Indication: ATRIAL FIBRILLATION
     Dosage: 150 MG
     Route: 048
     Dates: start: 20120216
  2. ALOSITOL [Suspect]
     Indication: GOUT
     Dosage: 200 MG
     Route: 048
  3. LUPRAC [Suspect]
     Indication: CARDIAC FAILURE
     Dosage: 8 MG
     Route: 048
  4. MAINTATE [Suspect]
     Indication: CARDIAC FAILURE
     Dosage: 7.5 MG
     Route: 048

REACTIONS (3)
  - Cardiac failure chronic [Recovered/Resolved]
  - Renal impairment [Recovered/Resolved]
  - Oedema peripheral [Unknown]
